FAERS Safety Report 9156822 (Version 1)
Quarter: 2013Q1

REPORT INFORMATION
  Report Type: Spontaneous
  Country: US (occurrence: None)
  Receive Date: 20130308
  Receipt Date: 20130308
  Transmission Date: 20140127
  Serious: Yes (Hospitalization, Other)
  Sender: FDA-Public Use
  Company Number: None

PATIENT
  Age: 6 Year
  Sex: Male
  Weight: 23.13 kg

DRUGS (4)
  1. LAMICTAL 5MG TEVA [Suspect]
     Indication: EPILEPSY
     Dosage: 5MG  1 PILL AT NIGHT PO
     Route: 048
     Dates: start: 20130224, end: 20130306
  2. TRILEPTAL [Concomitant]
  3. LEVIMAR [Concomitant]
  4. HUMALOG [Concomitant]

REACTIONS (13)
  - Oropharyngeal pain [None]
  - Rhinalgia [None]
  - Oedema mouth [None]
  - Lip swelling [None]
  - Pharyngeal oedema [None]
  - Swollen tongue [None]
  - Dyspnoea [None]
  - Screaming [None]
  - Pain [None]
  - Vision blurred [None]
  - Platelet count decreased [None]
  - Paraesthesia [None]
  - Pain in extremity [None]
